FAERS Safety Report 6283250-1 (Version None)
Quarter: 2009Q3

REPORT INFORMATION
  Report Type: 
  Country: None (occurrence: None)
  Receive Date: 20090721
  Receipt Date: 20090721
  Transmission Date: 20100115
  Serious: Yes (Hospitalization)
  Sender: FDA-Public Use
  Company Number: None

PATIENT
  Age: 75 Year
  Weight: 70 kg

DRUGS (2)
  1. LISINOPRIL [Suspect]
     Indication: CARDIAC FAILURE CHRONIC
     Dosage: 10 MG Q12HRS PO
     Route: 048
  2. POTASSIUM CHLORIDE [Suspect]
     Dosage: 10 MEQ DAILY PO
     Route: 048

REACTIONS (4)
  - CHEST DISCOMFORT [None]
  - COUGH [None]
  - DYSPNOEA [None]
  - RENAL FAILURE [None]
